FAERS Safety Report 8838053 (Version 1)
Quarter: 2012Q4

REPORT INFORMATION
  Report Type: 
  Country: US (occurrence: US)
  Receive Date: 20121012
  Receipt Date: 20121012
  Transmission Date: 20130627
  Serious: Yes (Death, Hospitalization)
  Sender: FDA-Public Use
  Company Number: US-ROCHE-GNE096867

PATIENT
  Age: 6 Year
  Sex: Male

DRUGS (8)
  1. NUTROPIN AQ [Suspect]
     Indication: RENAL FAILURE CHRONIC
     Route: 058
     Dates: start: 2000
  2. CARBATROL [Concomitant]
     Route: 065
  3. VASOTEC [Concomitant]
     Route: 065
  4. PRILOSEC [Concomitant]
     Route: 065
  5. EPOGEN [Concomitant]
     Route: 065
  6. MINOXIDIL [Concomitant]
     Route: 065
  7. FOLIC ACID [Concomitant]
  8. VITAMINS [Concomitant]

REACTIONS (2)
  - Death [Fatal]
  - Convulsion [Unknown]
